FAERS Safety Report 11310971 (Version 1)
Quarter: 2015Q3

REPORT INFORMATION
  Report Type: Spontaneous
  Country: US (occurrence: US)
  Receive Date: 20150727
  Receipt Date: 20150727
  Transmission Date: 20151125
  Serious: Yes (Other)
  Sender: FDA-Public Use
  Company Number: US-ALVOGEN-2015AL002970

PATIENT
  Sex: Male

DRUGS (2)
  1. ATENOLOL. [Suspect]
     Active Substance: ATENOLOL
     Indication: HYPERTENSION
  2. TOSYLCHLORAMIDE SODIUM [Suspect]
     Active Substance: CHLORAMINE-T ANHYDROUS
     Indication: HYPERTENSION

REACTIONS (1)
  - Erectile dysfunction [Unknown]
